FAERS Safety Report 12441664 (Version 1)
Quarter: 2016Q2

REPORT INFORMATION
  Report Type: Spontaneous
  Country: US (occurrence: None)
  Receive Date: 20160606
  Receipt Date: 20160606
  Transmission Date: 20160815
  Serious: Yes (Life-Threatening, Hospitalization)
  Sender: FDA-Public Use
  Company Number: None

PATIENT
  Age: 62 Year
  Sex: Female

DRUGS (1)
  1. CLOZAPINE, 125 MG [Suspect]
     Active Substance: CLOZAPINE
     Indication: SCHIZOPHRENIA
     Route: 048

REACTIONS (8)
  - C-reactive protein increased [None]
  - Blood creatine phosphokinase increased [None]
  - White blood cell count increased [None]
  - Heart rate abnormal [None]
  - Electrocardiogram abnormal [None]
  - Brain natriuretic peptide increased [None]
  - Myocarditis [None]
  - Red blood cell sedimentation rate increased [None]

NARRATIVE: CASE EVENT DATE: 20150930
